FAERS Safety Report 19827051 (Version 1)
Quarter: 2021Q3

REPORT INFORMATION
  Report Type: Spontaneous
  Country: US (occurrence: US)
  Receive Date: 20210914
  Receipt Date: 20210914
  Transmission Date: 20211014
  Serious: Yes (Other)
  Sender: FDA-Public Use
  Company Number: US-STRIDES ARCOLAB LIMITED-2020SP012434

PATIENT
  Age: 30 Year
  Sex: Male

DRUGS (22)
  1. IPRATROPIUM [Concomitant]
     Active Substance: IPRATROPIUM
     Indication: PRODUCT USED FOR UNKNOWN INDICATION
     Dosage: UNK
     Route: 065
     Dates: start: 2016
  2. VALGANCICLOVIR. [Concomitant]
     Active Substance: VALGANCICLOVIR
     Indication: PRODUCT USED FOR UNKNOWN INDICATION
     Dosage: 450 MILLIGRAM EVERY 48 HRS
     Route: 065
     Dates: start: 2016
  3. INSULIN [Concomitant]
     Active Substance: INSULIN NOS
     Indication: PRODUCT USED FOR UNKNOWN INDICATION
     Dosage: UNK
     Route: 065
     Dates: start: 2016
  4. PANCRELIPASE. [Concomitant]
     Active Substance: PANCRELIPASE
     Indication: PRODUCT USED FOR UNKNOWN INDICATION
     Dosage: UNK
     Route: 065
     Dates: start: 2016
  5. TACROLIMUS. [Suspect]
     Active Substance: TACROLIMUS
     Dosage: UNK, DOSE INCREASED
     Route: 048
     Dates: start: 20160926, end: 20161108
  6. VORICONAZOLE. [Suspect]
     Active Substance: VORICONAZOLE
     Indication: PRODUCT USED FOR UNKNOWN INDICATION
     Dosage: 200 MILLIGRAM, BID
     Route: 065
     Dates: start: 2016
  7. MAGNESIUM [Concomitant]
     Active Substance: MAGNESIUM
     Indication: PRODUCT USED FOR UNKNOWN INDICATION
     Dosage: 400 MILLIGRAM DAILY
     Route: 065
     Dates: start: 2016
  8. PREDNISOLONE. [Suspect]
     Active Substance: PREDNISOLONE
     Indication: LUNG TRANSPLANT
     Dosage: UNK
     Route: 065
     Dates: start: 20140715
  9. ZOLPIDEM [Concomitant]
     Active Substance: ZOLPIDEM TARTRATE
     Indication: PRODUCT USED FOR UNKNOWN INDICATION
     Dosage: 5 MILLIGRAM QHS
     Route: 065
     Dates: start: 2016
  10. AZITHROMYCIN ANHYDROUS. [Concomitant]
     Active Substance: AZITHROMYCIN ANHYDROUS
     Indication: PRODUCT USED FOR UNKNOWN INDICATION
     Dosage: 100 MILLIGRAM (M/W/F)
     Route: 065
     Dates: start: 2016
  11. BUPROPION. [Concomitant]
     Active Substance: BUPROPION
     Indication: PRODUCT USED FOR UNKNOWN INDICATION
     Dosage: 75 MILLIGRAM, BID
     Route: 065
     Dates: start: 2016
  12. LUBIPROSTONE [Concomitant]
     Active Substance: LUBIPROSTONE
     Indication: PRODUCT USED FOR UNKNOWN INDICATION
     Dosage: 24 MICROGRAM, BID
     Route: 065
     Dates: start: 2016
  13. PRAVASTATIN. [Concomitant]
     Active Substance: PRAVASTATIN
     Indication: PRODUCT USED FOR UNKNOWN INDICATION
     Dosage: 10 MILLIGRAM QHS
     Route: 065
     Dates: start: 2016
  14. MYCOPHENOLATE MOFETIL. [Suspect]
     Active Substance: MYCOPHENOLATE MOFETIL
     Indication: LUNG TRANSPLANT
     Dosage: UNK
     Route: 065
     Dates: start: 20140715
  15. DILTIAZEM. [Concomitant]
     Active Substance: DILTIAZEM
     Indication: PRODUCT USED FOR UNKNOWN INDICATION
     Dosage: 720 MILLIGRAM DAILY
     Route: 065
     Dates: start: 2016
  16. FOLIC ACID. [Concomitant]
     Active Substance: FOLIC ACID
     Indication: PRODUCT USED FOR UNKNOWN INDICATION
     Dosage: 1 MILLIGRAM DAILY
     Route: 065
     Dates: start: 2016
  17. GABAPENTIN. [Concomitant]
     Active Substance: GABAPENTIN
     Indication: PRODUCT USED FOR UNKNOWN INDICATION
     Dosage: 300 MILLIGRAM, TID
     Route: 065
     Dates: start: 2016
  18. TACROLIMUS. [Suspect]
     Active Substance: TACROLIMUS
     Indication: LUNG TRANSPLANT
     Dosage: 2.5 MILLIGRAM, BID
     Route: 048
     Dates: start: 20140715, end: 20160926
  19. PREDNISOLONE. [Suspect]
     Active Substance: PREDNISOLONE
     Dosage: 10 MILLIGRAM DAILY
     Route: 065
     Dates: start: 2016
  20. METOPROLOL TARTRATE. [Concomitant]
     Active Substance: METOPROLOL TARTRATE
     Indication: PRODUCT USED FOR UNKNOWN INDICATION
     Dosage: 12.5 MILLIGRAM, BID
     Route: 065
     Dates: start: 2016
  21. PANTOPRAZOLE [Concomitant]
     Active Substance: PANTOPRAZOLE
     Indication: PRODUCT USED FOR UNKNOWN INDICATION
     Dosage: 40 MILLIGRAM DAILY
     Route: 065
     Dates: start: 2016
  22. LEVALBUTEROL [LEVOSALBUTAMOL] [Concomitant]
     Active Substance: LEVALBUTEROL
     Indication: PRODUCT USED FOR UNKNOWN INDICATION
     Dosage: UNK
     Route: 065
     Dates: start: 2016

REACTIONS (7)
  - Vision blurred [Recovered/Resolved]
  - Transplant rejection [Unknown]
  - Blindness [Recovered/Resolved]
  - Atrophy [Recovered/Resolved]
  - Dyschromatopsia [Recovered/Resolved]
  - Off label use [Unknown]
  - Toxic optic neuropathy [Recovered/Resolved]

NARRATIVE: CASE EVENT DATE: 2016
